FAERS Safety Report 12494103 (Version 1)
Quarter: 2016Q2

REPORT INFORMATION
  Report Type: Report from Study
  Country: TW (occurrence: TW)
  Receive Date: 20160623
  Receipt Date: 20160623
  Transmission Date: 20160815
  Serious: No
  Sender: FDA-Public Use
  Company Number: PHHY2015TW172997

PATIENT
  Age: 27 Year
  Sex: Male

DRUGS (6)
  1. PROPRANOLOL [Concomitant]
     Active Substance: PROPRANOLOL\PROPRANOLOL HYDROCHLORIDE
     Indication: MITRAL VALVE DISEASE
     Dosage: 10 MG, UNK
     Route: 048
     Dates: start: 20140205, end: 20150324
  2. FLURBIPROFEN. [Concomitant]
     Active Substance: FLURBIPROFEN
     Indication: PRODUCT USED FOR UNKNOWN INDICATION
     Dosage: 40 MG, UNK
     Route: 061
     Dates: start: 20130916, end: 20130930
  3. FEXOFENADINE [Concomitant]
     Active Substance: FEXOFENADINE\FEXOFENADINE HYDROCHLORIDE
     Indication: PRODUCT USED FOR UNKNOWN INDICATION
     Dosage: 60 MG, UNK
     Route: 048
     Dates: start: 20130121, end: 20130218
  4. TASIGNA [Suspect]
     Active Substance: NILOTINIB
     Indication: CHRONIC MYELOID LEUKAEMIA
     Dosage: 600 OT, UNK
     Route: 048
     Dates: start: 20130304
  5. AMBROXOL [Concomitant]
     Active Substance: AMBROXOL
     Indication: PROPHYLAXIS
     Dosage: 30 MG, UNK
     Route: 048
     Dates: start: 20130120, end: 20130127
  6. BROWN MIXTURE                      /01682301/ [Concomitant]
     Indication: PROPHYLAXIS
     Dosage: 15 UNK, UNK
     Route: 048
     Dates: start: 20130120, end: 20130127

REACTIONS (2)
  - Peyronie^s disease [Recovered/Resolved]
  - Peyronie^s disease [Recovered/Resolved]

NARRATIVE: CASE EVENT DATE: 20130930
